FAERS Safety Report 7562558-3 (Version None)
Quarter: 2011Q2

REPORT INFORMATION
  Report Type: 
  Country: None (occurrence: None)
  Receive Date: 20110621
  Receipt Date: 20110621
  Transmission Date: 20111010
  Serious: Yes (Death)
  Sender: FDA-Public Use
  Company Number: None

PATIENT
  Sex: Male

DRUGS (4)
  1. ALCOHOLIC BEVERAGES [Concomitant]
  2. STENTS [Suspect]
  3. ASPIRIN [Suspect]
  4. EFFIENT [Suspect]
     Indication: STENT PLACEMENT
     Dosage: 10 MG DAILY OPHTHALMIC
     Route: 047
     Dates: start: 20110110, end: 20110512

REACTIONS (2)
  - HEMIPARESIS [None]
  - HAEMORRHAGE INTRACRANIAL [None]
